FAERS Safety Report 18179096 (Version 1)
Quarter: 2020Q3

REPORT INFORMATION
  Report Type: Spontaneous
  Country: IT (occurrence: IT)
  Receive Date: 20200820
  Receipt Date: 20200820
  Transmission Date: 20201103
  Serious: Yes (Other)
  Sender: FDA-Public Use
  Company Number: IT-TOLMAR, INC.-20IT022448

PATIENT
  Age: 51 Year
  Sex: Male

DRUGS (1)
  1. ELIGARD [Suspect]
     Active Substance: LEUPROLIDE ACETATE
     Indication: SALIVARY GLAND CANCER
     Dosage: 3.75 MG, Q 1 MONTH
     Route: 065

REACTIONS (2)
  - Metastatic salivary gland cancer [Not Recovered/Not Resolved]
  - Off label use [Unknown]
